FAERS Safety Report 6118491-7 (Version None)
Quarter: 2009Q1

REPORT INFORMATION
  Report Type: 
  Country: None (occurrence: None)
  Receive Date: 20090314
  Receipt Date: 20090220
  Transmission Date: 20090719
  Serious: No
  Sender: FDA-Public Use
  Company Number: US-ABBOTT-09P-163-0558690-00

PATIENT
  Sex: Male
  Weight: 76.726 kg

DRUGS (2)
  1. HUMIRA [Suspect]
     Indication: ANKYLOSING SPONDYLITIS
     Dates: start: 20060206, end: 20070903
  2. HUMIRA [Suspect]
     Indication: CROHN'S DISEASE

REACTIONS (2)
  - PAIN [None]
  - POLYNEUROPATHY [None]
